FAERS Safety Report 11452028 (Version 1)
Quarter: 2015Q3

REPORT INFORMATION
  Report Type: Spontaneous
  Country: US (occurrence: US)
  Receive Date: 20150903
  Receipt Date: 20150903
  Transmission Date: 20151125
  Serious: No
  Sender: FDA-Public Use
  Company Number: US-ROCHE-1072049

PATIENT
  Sex: Female

DRUGS (3)
  1. TELAPREVIR [Suspect]
     Active Substance: TELAPREVIR
     Indication: CHRONIC HEPATITIS C
     Route: 065
     Dates: start: 20111111
  2. PEGASYS [Suspect]
     Active Substance: PEGINTERFERON ALFA-2A
     Indication: CHRONIC HEPATITIS C
     Route: 058
     Dates: start: 20111111
  3. RIBAVIRIN. [Suspect]
     Active Substance: RIBAVIRIN
     Indication: CHRONIC HEPATITIS C
     Route: 048
     Dates: start: 20111111

REACTIONS (14)
  - Red blood cell count decreased [Unknown]
  - White blood cell count decreased [Unknown]
  - Hair texture abnormal [Unknown]
  - Odynophagia [Unknown]
  - Depression [Unknown]
  - Nervousness [Unknown]
  - Cough [Unknown]
  - Alopecia [Unknown]
  - Fatigue [Unknown]
  - Pyrexia [Unknown]
  - Weight decreased [Unknown]
  - Lymphadenopathy [Unknown]
  - Somnolence [Unknown]
  - Neutrophil count decreased [Unknown]
